FAERS Safety Report 7183508-8 (Version None)
Quarter: 2010Q4

REPORT INFORMATION
  Report Type: 
  Country: None (occurrence: None)
  Receive Date: 20101222
  Receipt Date: 20101213
  Transmission Date: 20110411
  Serious: Yes (Death, Other)
  Sender: FDA-Public Use
  Company Number: PHHY2010JP46363

PATIENT
  Sex: Male

DRUGS (6)
  1. DIOVAN [Suspect]
     Indication: HYPERTENSION
     Dosage: 80 MG, QD
     Route: 048
     Dates: start: 20080305, end: 20090527
  2. SELOKEN [Concomitant]
     Indication: HYPERTENSION
     Dosage: 20 MG
     Route: 048
     Dates: start: 20021218, end: 20090527
  3. PERDIPINE-LA [Concomitant]
     Indication: HYPERTENSION
     Dosage: 80 MG
     Route: 048
     Dates: start: 20000622, end: 20090527
  4. MEVALOTIN [Concomitant]
     Indication: HYPERTENSION
     Dosage: 10 MG
     Route: 048
     Dates: start: 20041013, end: 20090527
  5. CARNACULIN [Concomitant]
     Dosage: 100 IU
     Route: 048
     Dates: start: 20001026, end: 20090527
  6. ASPIRIN [Concomitant]
     Dosage: 100 MG
     Route: 048
     Dates: start: 20000501, end: 20090527

REACTIONS (9)
  - ANAEMIA [None]
  - BLOOD CHOLESTEROL DECREASED [None]
  - BLOOD GLUCOSE INCREASED [None]
  - BLOOD PRESSURE DECREASED [None]
  - DEHYDRATION [None]
  - DISSEMINATED INTRAVASCULAR COAGULATION [None]
  - MELAENA [None]
  - PANCREATIC CARCINOMA [None]
  - RENAL IMPAIRMENT [None]
